FAERS Safety Report 9304105 (Version 1)
Quarter: 2013Q2

REPORT INFORMATION
  Report Type: Spontaneous
  Country: NZ (occurrence: NZ)
  Receive Date: 20130522
  Receipt Date: 20130522
  Transmission Date: 20140414
  Serious: Yes (Disabling, Other)
  Sender: FDA-Public Use
  Company Number: NZ-WATSON-2013-08718

PATIENT
  Age: 27 Year
  Sex: Female

DRUGS (3)
  1. BUPIVACAINE (UNKNOWN) [Suspect]
     Indication: SPINAL ANAESTHESIA
     Dosage: 2.5 ML 0.5%
     Route: 050
  2. FENTANYL (UNKNOWN) [Suspect]
     Indication: SPINAL ANAESTHESIA
     Dosage: 12.5 MCG ADMINISTERED OVER APPROXIMATELY 15 SECONDS
     Route: 050
  3. CHLORHEXIDINE GLUCONATE W/ISOPROPANOL [Suspect]
     Indication: INFECTION PROPHYLAXIS
     Dosage: 2% CLORHEXIDINE GLUCONATE AND 70% ISOPROPYL ALCOHOL
     Route: 061

REACTIONS (7)
  - Arachnoiditis [Not Recovered/Not Resolved]
  - Paraplegia [Not Recovered/Not Resolved]
  - Hydrocephalus [Not Recovered/Not Resolved]
  - Acquired syringomyelia [Not Recovered/Not Resolved]
  - Post lumbar puncture syndrome [Recovered/Resolved]
  - Vomiting [Unknown]
  - Maternal exposure during pregnancy [Recovered/Resolved]
